FAERS Safety Report 11328588 (Version 2)
Quarter: 2015Q3

REPORT INFORMATION
  Report Type: Spontaneous
  Country: US (occurrence: US)
  Receive Date: 20150731
  Receipt Date: 20150805
  Transmission Date: 20151125
  Serious: No
  Sender: FDA-Public Use
  Company Number: US-PFIZER INC-2015253284

PATIENT
  Sex: Female

DRUGS (1)
  1. LYRICA [Suspect]
     Active Substance: PREGABALIN
     Indication: VAGINAL DISORDER
     Dosage: UNK

REACTIONS (4)
  - Pain [Unknown]
  - Malaise [Unknown]
  - Eye disorder [Unknown]
  - Urinary tract pain [Unknown]
